FAERS Safety Report 16968325 (Version 1)
Quarter: 2019Q4

REPORT INFORMATION
  Report Type: Report from Study
  Country: None (occurrence: BE)
  Receive Date: 20191028
  Receipt Date: 20191028
  Transmission Date: 20200122
  Serious: Yes (Death)
  Sender: FDA-Public Use
  Company Number: BE-ABBVIE-19K-013-2979836-00

PATIENT
  Sex: Male

DRUGS (7)
  1. DUODOPA [Suspect]
     Active Substance: CARBIDOPA\LEVODOPA
     Indication: PARKINSON^S DISEASE
     Dosage: MD=9ML, CD=5ML/HR DURING 16HRS, ED=3ML?20 MG/ML 5 MG/ML
     Route: 050
     Dates: start: 20120924, end: 20130731
  2. MIRAPEXIN [Concomitant]
     Active Substance: PRAMIPEXOLE
     Indication: PRODUCT USED FOR UNKNOWN INDICATION
     Route: 065
  3. STALEVO 150 [Concomitant]
     Indication: PARKINSON^S DISEASE
     Dosage: FORM STRENGTH: 150MG/37.5MG/200MG; UNIT DOSE: 1 TABLET
     Route: 048
  4. STALEVO 150 [Concomitant]
     Dosage: FORM STRENGTH: 150MG/37.5MG/200MG; RESCUE MEDICATION
     Route: 048
  5. PROLOPA 125 HBS [Concomitant]
     Indication: PARKINSON^S DISEASE
     Dosage: FORM STRENGTH: 100MG/25MG; UNIT DOSE: 2 CAPSULES
     Route: 048
  6. DUODOPA [Suspect]
     Active Substance: CARBIDOPA\LEVODOPA
     Dosage: DOSES CONTINUOUSLY MONITORED AND ADAPTED
     Route: 050
     Dates: start: 20130731, end: 20190625
  7. DUODOPA [Suspect]
     Active Substance: CARBIDOPA\LEVODOPA
     Dosage: MD=2.7ML, CD=3.3ML/HR DURING 16HRS, ED=1ML
     Route: 050
     Dates: start: 20190625

REACTIONS (1)
  - Pneumonia [Fatal]
